FAERS Safety Report 5068696-1 (Version None)
Quarter: 2006Q3

REPORT INFORMATION
  Report Type: 
  Country: None (occurrence: None)
  Receive Date: 20060802
  Receipt Date: 20060216
  Transmission Date: 20061208
  Serious: No
  Sender: FDA-Public Use
  Company Number: US-BRISTOL-MYERS SQUIBB COMPANY-13287156

PATIENT
  Age: 79 Year
  Sex: Male
  Weight: 79 kg

DRUGS (7)
  1. COUMADIN [Suspect]
     Indication: ATRIAL FIBRILLATION
     Route: 048
     Dates: start: 20060201
  2. KLOR-CON [Concomitant]
     Dates: start: 20060201
  3. IMDUR [Concomitant]
     Dates: start: 20060201
  4. ALTACE [Concomitant]
     Dates: start: 20060201
  5. ASPIRIN [Concomitant]
  6. AMIODARONE HCL [Concomitant]
     Dates: start: 20060201
  7. ZOCOR [Concomitant]

REACTIONS (2)
  - INTERNATIONAL NORMALISED RATIO INCREASED [None]
  - PROTHROMBIN LEVEL DECREASED [None]
